FAERS Safety Report 11824098 (Version 2)
Quarter: 2015Q4

REPORT INFORMATION
  Report Type: Report from Study
  Country: JP (occurrence: JP)
  Receive Date: 20151210
  Receipt Date: 20151229
  Transmission Date: 20160305
  Serious: Yes (Hospitalization, Other)
  Sender: FDA-Public Use
  Company Number: JP-BRISTOL-MYERS SQUIBB COMPANY-BMS-2015-085014

PATIENT
  Age: 87 Year
  Sex: Female
  Weight: 51 kg

DRUGS (7)
  1. ARTIST [Concomitant]
     Active Substance: CARVEDILOL
     Indication: CHRONIC KIDNEY DISEASE
     Dosage: 20 MG, QD
     Route: 048
     Dates: end: 20150212
  2. LASIX [Concomitant]
     Active Substance: FUROSEMIDE
     Indication: CHRONIC KIDNEY DISEASE
     Dosage: 20 MG, QD
     Route: 048
     Dates: end: 20150212
  3. SALOBEL [Concomitant]
     Active Substance: ALLOPURINOL
     Indication: HYPERURICAEMIA
     Dosage: 100 MG, QD
     Route: 048
     Dates: end: 20150212
  4. LIPITOR [Concomitant]
     Active Substance: ATORVASTATIN CALCIUM
     Indication: DYSLIPIDAEMIA
     Dosage: 10 MG, QD
     Route: 048
     Dates: end: 20150212
  5. APIXABAN [Suspect]
     Active Substance: APIXABAN
     Indication: THROMBOSIS PROPHYLAXIS
     Dosage: 2.5 MG, BID
     Route: 048
     Dates: start: 20131120, end: 20150212
  6. HERBAL NOS [Concomitant]
     Active Substance: HERBALS
     Indication: HYPERTENSION
     Dosage: 5 G, QD
     Route: 048
     Dates: end: 20150212
  7. GASTER [Concomitant]
     Active Substance: FAMOTIDINE
     Indication: GASTRIC ULCER
     Dosage: 20 MG, QD
     Route: 048
     Dates: end: 20150212

REACTIONS (3)
  - Femur fracture [Unknown]
  - Fall [Unknown]
  - Internal fixation of fracture [Unknown]

NARRATIVE: CASE EVENT DATE: 20150109
